FAERS Safety Report 5634416-2 (Version None)
Quarter: 2008Q1

REPORT INFORMATION
  Report Type: 
  Country: None (occurrence: None)
  Receive Date: 20080222
  Receipt Date: 20080212
  Transmission Date: 20080703
  Serious: Yes (Other)
  Sender: FDA-Public Use
  Company Number: US-BRISTOL-MYERS SQUIBB COMPANY-14086227

PATIENT
  Age: 82 Year

DRUGS (2)
  1. PRINIVIL [Suspect]
     Route: 048
  2. IRBESARTAN [Suspect]

REACTIONS (1)
  - RENAL FAILURE CHRONIC [None]
